FAERS Safety Report 5434293-9 (Version None)
Quarter: 2007Q3

REPORT INFORMATION
  Report Type: 
  Country: None (occurrence: None)
  Receive Date: 20070829
  Receipt Date: 20070731
  Transmission Date: 20080115
  Serious: Yes (Other)
  Sender: FDA-Public Use
  Company Number: E2090-00276-SPO-JP

PATIENT
  Age: 63 Year
  Sex: Female

DRUGS (12)
  1. ZONISAMIDE [Suspect]
     Indication: CONVULSION PROPHYLAXIS
     Dosage: 150 MG, ORAL
     Route: 048
     Dates: start: 20070512, end: 20070605
  2. PENMALIN (PIPERACILLIN SODIUM) [Suspect]
     Dosage: 6 GM, INTRAVENOUS DRIP; 4 GM, INTRAVENOUS DRIP
     Route: 041
     Dates: start: 20070508, end: 20070531
  3. PENMALIN (PIPERACILLIN SODIUM) [Suspect]
     Dosage: 6 GM, INTRAVENOUS DRIP; 4 GM, INTRAVENOUS DRIP
     Route: 041
     Dates: start: 20070601, end: 20070605
  4. RECOGNAN (CITICOLINE) [Concomitant]
  5. CLINDAMYCIN HCL [Concomitant]
  6. SYMMETREL [Concomitant]
  7. ALTAT (ROXATADINE ACETATE HYDROCHLORIDE) [Concomitant]
  8. CEROCRAL (IFENPRODIL TARTRATE) [Concomitant]
  9. METHYCOBAL (MECOBALAMIN) [Concomitant]
  10. TRINOSIN (ADENOSINE TRIPHOSPHATE, DISODIUM SALT) [Concomitant]
  11. JUVELA N (TOCOPHERYL NICOTINATE) [Concomitant]
  12. VICCILLIN-S (VICCILLIN-S) [Concomitant]

REACTIONS (3)
  - DRUG RASH WITH EOSINOPHILIA AND SYSTEMIC SYMPTOMS [None]
  - SWELLING [None]
  - WHITE BLOOD CELL COUNT DECREASED [None]
